FAERS Safety Report 11302573 (Version 1)
Quarter: 2015Q3

REPORT INFORMATION
  Report Type: Report from Study
  Country: SK (occurrence: SK)
  Receive Date: 20150723
  Receipt Date: 20150723
  Transmission Date: 20151125
  Serious: Yes (Hospitalization)
  Sender: FDA-Public Use
  Company Number: SK-BIOGENIDEC-2015BI098627

PATIENT
  Age: 19 Year
  Sex: Female

DRUGS (5)
  1. TRITACE 5 [Concomitant]
     Indication: HYPERTENSION
  2. BETALOK [Concomitant]
     Indication: HYPERTENSION
  3. RANITIDINE [Concomitant]
     Active Substance: RANITIDINE\RANITIDINE HYDROCHLORIDE
     Indication: HYPERCHOLESTEROLAEMIA
  4. AVONEX [Suspect]
     Active Substance: INTERFERON BETA-1A
     Indication: PRODUCT USED FOR UNKNOWN INDICATION
     Route: 030
     Dates: start: 20120703
  5. IBALGIN 400 [Concomitant]
     Indication: MULTIPLE SCLEROSIS

REACTIONS (1)
  - Knee operation [Recovered/Resolved]

NARRATIVE: CASE EVENT DATE: 20121121
